FAERS Safety Report 6437168-1 (Version None)
Quarter: 2009Q4

REPORT INFORMATION
  Report Type: 
  Country: None (occurrence: None)
  Receive Date: 20091112
  Receipt Date: 20091106
  Transmission Date: 20100525
  Serious: Yes (Hospitalization)
  Sender: FDA-Public Use
  Company Number: US-BAYER-200912893NA

PATIENT
  Age: 62 Year
  Sex: Female
  Weight: 87 kg

DRUGS (7)
  1. SORAFENIB [Suspect]
     Indication: RENAL CELL CARCINOMA
     Dosage: TOTAL DAILY DOSE: 800 MG  UNIT DOSE: 200 MG
     Route: 048
     Dates: start: 20090107, end: 20090115
  2. SORAFENIB [Suspect]
     Dosage: TOTAL DAILY DOSE: 400 MG  UNIT DOSE: 200 MG
     Route: 048
     Dates: start: 20090124, end: 20090320
  3. ESTRADIOL [Concomitant]
     Dates: start: 19840101
  4. THYROID TAB [Concomitant]
     Dates: start: 19830101
  5. REGLAN [Concomitant]
     Dates: start: 20080101
  6. FERROUS GLUCONATE [Concomitant]
     Dates: start: 20090101
  7. PROTONIX [Concomitant]
     Dates: start: 20080101

REACTIONS (3)
  - BREAST PAIN [None]
  - DYSPNOEA [None]
  - PULMONARY EMBOLISM [None]
